FAERS Safety Report 7706283-4 (Version None)
Quarter: 2011Q3

REPORT INFORMATION
  Report Type: 
  Country: None (occurrence: None)
  Receive Date: 20110801
  Receipt Date: 20110614
  Transmission Date: 20111222
  Serious: Yes (Hospitalization)
  Sender: FDA-Public Use
  Company Number: AMAG201100138

PATIENT
  Age: 86 Year
  Sex: Male
  Weight: 85.7 kg

DRUGS (8)
  1. IRON (IRON) [Concomitant]
  2. TOPROL-XL [Concomitant]
  3. VYTORIN [Concomitant]
  4. LISINOPRIL [Concomitant]
  5. NITROGLYCERIN [Concomitant]
  6. FERAHEME [Suspect]
     Indication: GASTROINTESTINAL HAEMORRHAGE
     Dosage: 510 MG, SINGLE, INTRAVENOUS
     Route: 042
     Dates: start: 20110128, end: 20110128
  7. AMIODARONE (AMIODARONE HYDROCHLORIDE) [Concomitant]
  8. FEREX (FERUMOXIDES) [Concomitant]

REACTIONS (8)
  - DYSPNOEA [None]
  - UNRESPONSIVE TO STIMULI [None]
  - HYPERHIDROSIS [None]
  - FLUSHING [None]
  - OXYGEN SATURATION DECREASED [None]
  - RETCHING [None]
  - PRURITUS [None]
  - HYPOTENSION [None]
